FAERS Safety Report 7809659-X (Version None)
Quarter: 2011Q4

REPORT INFORMATION
  Report Type: 
  Country: None (occurrence: None)
  Receive Date: 20111012
  Receipt Date: 20111007
  Transmission Date: 20120403
  Serious: Yes (Hospitalization)
  Sender: FDA-Public Use
  Company Number: US-GLAXOSMITHKLINE-A0800612A

PATIENT
  Age: 5 Year
  Sex: Female

DRUGS (1)
  1. AVANDIA [Suspect]
     Indication: DIABETES MELLITUS
     Dosage: 8MG PER DAY
     Route: 048
     Dates: end: 20010101

REACTIONS (4)
  - MYOCARDIAL INFARCTION [None]
  - INJURY [None]
  - CARDIAC FAILURE CONGESTIVE [None]
  - UPPER LIMB FRACTURE [None]
